FAERS Safety Report 21856882 (Version 1)
Quarter: 2023Q1

REPORT INFORMATION
  Report Type: Spontaneous
  Country: DE (occurrence: DE)
  Receive Date: 20230113
  Receipt Date: 20230113
  Transmission Date: 20230418
  Serious: Yes (Hospitalization, Other)
  Sender: FDA-Public Use
  Company Number: None

PATIENT
  Age: 77 Year
  Sex: Male

DRUGS (17)
  1. GEMCITABINE [Suspect]
     Active Substance: GEMCITABINE
     Indication: Product used for unknown indication
     Dosage: SOLUTION FOR INJECTION/INFUSION
     Route: 065
  2. PACLITAXEL [Suspect]
     Active Substance: PACLITAXEL
     Indication: Product used for unknown indication
     Dosage: SOLUTION FOR INJECTION/INFUSION
     Route: 042
  3. SMOFLIPID [Concomitant]
     Active Substance: FISH OIL\MEDIUM-CHAIN TRIGLYCERIDES\OLIVE OIL\SOYBEAN OIL
     Indication: Product used for unknown indication
     Dosage: NK MG/3 WEEKS, NK, SOLUTION FOR INJECTION/INFUSION 200MG/ML100ML
     Route: 042
  4. PANTAPRAZOL [Concomitant]
     Indication: Product used for unknown indication
     Dosage: 40 MG, 1-0-0-0, TABLETTEN
     Route: 048
  5. METOPROLOL [Concomitant]
     Active Substance: METOPROLOL
     Indication: Product used for unknown indication
     Dosage: 47.5 MG, 1-0-0-0, RETARD-TABLETTEN
     Route: 048
  6. SELENASE [Concomitant]
     Indication: Product used for unknown indication
     Dosage: 300 RP, 1-0-0-0, TABLETTEN
     Route: 048
  7. VOMEX A DRAGEES [Concomitant]
     Indication: Product used for unknown indication
     Dosage: 1X, TABLETTEN
     Route: 048
  8. VIGANTOL [Concomitant]
     Indication: Product used for unknown indication
     Dosage: 1000 IE, 1-0-0-0, TABLETTEN
     Route: 048
  9. CANDESARTAN [Concomitant]
     Active Substance: CANDESARTAN
     Indication: Product used for unknown indication
     Dosage: 16 MG, 1-0-0-0, TABLETTEN
     Route: 048
  10. AMPLODIPINE [Concomitant]
     Indication: Product used for unknown indication
     Dosage: 4 MG, 0.5-0-0-0, TABLETTEN
     Route: 048
  11. AMINO ACIDS\DEXTROSE\ELECTROLYTES NOS\SOYBEAN OIL [Concomitant]
     Active Substance: AMINO ACIDS\DEXTROSE\ELECTROLYTES NOS\SOYBEAN OIL
     Indication: Product used for unknown indication
     Dosage: NK
     Route: 042
  12. DEXAMETHASONE [Concomitant]
     Active Substance: DEXAMETHASONE
     Indication: Product used for unknown indication
     Dosage: 2 MG, 1-0-0-0, TABLETTEN
     Route: 048
  13. ALIZAPRIDE HYDROCHLORIDE [Concomitant]
     Active Substance: ALIZAPRIDE HYDROCHLORIDE
     Indication: Product used for unknown indication
     Dosage: 50 MG, 4X, TABLETTEN
     Route: 048
  14. ALLOPURINOL [Concomitant]
     Active Substance: ALLOPURINOL
     Indication: Product used for unknown indication
     Dosage: 300 MG, 1-0-0-0, TABLETTEN
     Route: 048
  15. TORSEMIDE [Concomitant]
     Active Substance: TORSEMIDE
     Indication: Product used for unknown indication
     Dosage: 5 MG, 1-0-0-0, TABLETTEN
     Route: 048
  16. ASPIRIN [Concomitant]
     Active Substance: ASPIRIN
     Indication: Product used for unknown indication
     Dosage: 100 MG, 0-1-0-0, TABLETTEN
     Route: 048
  17. MCP AL [Concomitant]
     Indication: Product used for unknown indication
     Dosage: 10 MG, 4X, TABLETTEN
     Route: 048

REACTIONS (2)
  - Haematuria [Unknown]
  - General physical health deterioration [Unknown]
